FAERS Safety Report 4655952-1 (Version None)
Quarter: 2005Q2

REPORT INFORMATION
  Report Type: 
  Country: None (occurrence: None)
  Receive Date: 20050505
  Receipt Date: 20050422
  Transmission Date: 20051028
  Serious: Yes (Hospitalization)
  Sender: FDA-Public Use
  Company Number: 2004100041

PATIENT
  Age: 79 Year
  Sex: Female

DRUGS (7)
  1. XANAX [Suspect]
     Indication: ILL-DEFINED DISORDER
     Dosage: ORAL
     Route: 048
     Dates: start: 20040529, end: 20040610
  2. DONEPEZIL HCL [Suspect]
     Indication: SENILE DEMENTIA
     Dosage: ORAL
     Route: 048
     Dates: end: 20040525
  3. AMITRIPTYLINE HYDROCHLORIDE [Suspect]
     Indication: DEPRESSION
     Dosage: ORAL
     Route: 048
     Dates: end: 20040525
  4. PAROXETINE HCL [Suspect]
     Indication: DEPRESSION
     Dosage: 200 MG, ORAL
     Route: 048
     Dates: start: 20040529, end: 20040610
  5. OLANZAPINE (OLANZAPINE) [Suspect]
     Indication: ILL-DEFINED DISORDER
     Dosage: ORAL
     Route: 048
     Dates: start: 20040419, end: 20040525
  6. PRINIZIDE (HYDROCHLOROTHIAZIDE, LISINOPRIL) [Concomitant]
  7. PANTOPRAZOLE (PANTOPRAZOLE) [Concomitant]

REACTIONS (5)
  - CATATONIA [None]
  - DEPRESSED LEVEL OF CONSCIOUSNESS [None]
  - FEEDING DISORDER [None]
  - HYPONATRAEMIA [None]
  - MUSCLE RIGIDITY [None]
